FAERS Safety Report 4635291-5 (Version None)
Quarter: 2005Q2

REPORT INFORMATION
  Report Type: 
  Country: None (occurrence: None)
  Receive Date: 20050414
  Receipt Date: 20031203
  Transmission Date: 20051028
  Serious: Yes (Other)
  Sender: FDA-Public Use
  Company Number: CA-AMGEN-US060738

PATIENT
  Sex: Male

DRUGS (6)
  1. ARANESP [Suspect]
     Indication: DIALYSIS
     Dates: start: 20030910, end: 20030910
  2. EPREX [Suspect]
     Indication: DIALYSIS
     Route: 058
     Dates: start: 20021211, end: 20030910
  3. BISOPROLOL FUMARATE [Concomitant]
     Dates: start: 20030123
  4. CALCIUM GLUCONATE [Concomitant]
     Dates: start: 20030222
  5. ADALAT - SLOW RELEASE [Concomitant]
     Dates: start: 20030123
  6. HEPATITIS B VACCINE [Concomitant]
     Dates: start: 20030206, end: 20030906

REACTIONS (3)
  - ANTI-ERYTHROPOIETIN ANTIBODY POSITIVE [None]
  - APLASIA PURE RED CELL [None]
  - GASTROINTESTINAL DISORDER [None]
